FAERS Safety Report 7513472-0 (Version None)
Quarter: 2011Q2

REPORT INFORMATION
  Report Type: 
  Country: None (occurrence: None)
  Receive Date: 20110531
  Receipt Date: 20110517
  Transmission Date: 20111010
  Serious: Yes (Other)
  Sender: FDA-Public Use
  Company Number: DE-MYLANLABS-2011S1010238

PATIENT
  Sex: Female
  Weight: 61.5 kg

DRUGS (3)
  1. PREDNISOLONE [Concomitant]
     Indication: COLITIS
     Dosage: 30 [MG (BIS 10) ]
     Route: 048
  2. AZATHIOPRINE [Suspect]
     Indication: COLITIS
     Dosage: 150 [MG/D ]
     Route: 048
  3. COLIFOAM [Concomitant]
     Indication: COLITIS
     Route: 054

REACTIONS (4)
  - PREGNANCY [None]
  - RETROPERITONEAL HAEMATOMA [None]
  - DRUG EXPOSURE DURING PREGNANCY [None]
  - ANTEPARTUM HAEMORRHAGE [None]
